FAERS Safety Report 7278795-1 (Version None)
Quarter: 2010Q4

REPORT INFORMATION
  Report Type: 
  Country: None (occurrence: None)
  Receive Date: 20101201
  Receipt Date: 20100121
  Transmission Date: 20110411
  Serious: Yes (Other)
  Sender: FDA-Public Use
  Company Number: 10-000133

PATIENT
  Age: 64 Year
  Sex: Female

DRUGS (7)
  1. FEMHRT [Suspect]
     Indication: HORMONE THERAPY
     Dosage: ORAL
     Route: 048
     Dates: start: 20020101, end: 20020101
  2. PREMARIN [Suspect]
     Indication: HORMONE THERAPY
     Dates: start: 19970101, end: 20020101
  3. PROVERA [Suspect]
     Indication: HORMONE THERAPY
     Dates: start: 19970101, end: 20020101
  4. ESTROPIPATE [Suspect]
     Indication: HORMONE THERAPY
     Dates: start: 20020101, end: 20080101
  5. PREMPHASE (PREMARIN;CYCRIN 14/14) [Suspect]
     Indication: HORMONE THERAPY
     Dates: start: 19960101, end: 19970101
  6. ACTIVELLA [Suspect]
     Indication: HORMONE THERAPY
     Dates: start: 20000801, end: 20001101
  7. OGEN [Suspect]
     Indication: HORMONE THERAPY
     Dates: start: 20020101, end: 20030101

REACTIONS (1)
  - BREAST CANCER [None]
